FAERS Safety Report 11842627 (Version 11)
Quarter: 2021Q3

REPORT INFORMATION
  Report Type: Report from Study
  Country: DE (occurrence: DE)
  Receive Date: 20151216
  Receipt Date: 20210909
  Transmission Date: 20211014
  Serious: Yes (Hospitalization, Other)
  Sender: FDA-Public Use
  Company Number: PHHO2015DE020004

PATIENT
  Age: 81 Year
  Sex: Male
  Weight: 89 kg

DRUGS (13)
  1. ABL001 [Suspect]
     Active Substance: ASCIMINIB
     Dosage: 20 MG, BID
     Route: 048
     Dates: start: 20160109
  2. NILOTINIB [Suspect]
     Active Substance: NILOTINIB
     Indication: CHRONIC MYELOID LEUKAEMIA
     Dosage: 300 MG, BID
     Route: 048
     Dates: start: 20150715, end: 20170330
  3. METOPROLOL. [Concomitant]
     Active Substance: METOPROLOL
     Dosage: 100 MG, BID
     Route: 048
     Dates: start: 20151209, end: 20151221
  4. TORASEMIDE [Concomitant]
     Active Substance: TORSEMIDE
     Indication: OEDEMA PERIPHERAL
     Dosage: 5 MG, QD
     Route: 048
     Dates: start: 2013, end: 20151115
  5. ALLOPURINOL. [Concomitant]
     Active Substance: ALLOPURINOL
     Indication: HYPERURICAEMIA
     Dosage: 300 MG, QD
     Route: 048
     Dates: start: 2013, end: 20151115
  6. ALLOPURINOL. [Concomitant]
     Active Substance: ALLOPURINOL
     Indication: PROPHYLAXIS
     Dosage: 100 MG, QD
     Route: 048
     Dates: start: 20151202, end: 20151207
  7. CANDESARTAN CILEXETIL. [Suspect]
     Active Substance: CANDESARTAN CILEXETIL
     Indication: HYPERTENSION
     Dosage: 32 MG, QD
     Route: 048
     Dates: start: 2013, end: 20151221
  8. METOPROLOL. [Concomitant]
     Active Substance: METOPROLOL
     Dosage: 50 MG, QD
     Route: 048
     Dates: start: 20151204, end: 20151208
  9. METOPROLOL. [Concomitant]
     Active Substance: METOPROLOL
     Dosage: 50 MG, QD
     Route: 048
     Dates: start: 20151222, end: 20160831
  10. ABL001 [Suspect]
     Active Substance: ASCIMINIB
     Indication: CHRONIC MYELOID LEUKAEMIA
     Dosage: 20 MG, BID
     Route: 048
     Dates: start: 20150715, end: 20151229
  11. TORASEMIDE [Concomitant]
     Active Substance: TORSEMIDE
     Indication: PLEURAL EFFUSION
  12. METOPROLOL. [Concomitant]
     Active Substance: METOPROLOL
     Indication: HYPERTENSION
     Dosage: 100 MG, BID
     Route: 048
     Dates: start: 2013, end: 20151129
  13. CANDESARTAN CILEXETIL. [Suspect]
     Active Substance: CANDESARTAN CILEXETIL
     Dosage: 16 MG, QD
     Route: 048
     Dates: start: 20151222, end: 20170515

REACTIONS (4)
  - Hyponatraemia [Recovered/Resolved]
  - Angina pectoris [Recovered/Resolved]
  - Hyponatraemia [Recovered/Resolved]
  - Impaired healing [Not Recovered/Not Resolved]

NARRATIVE: CASE EVENT DATE: 20151130
